FAERS Safety Report 14556827 (Version 7)
Quarter: 2019Q4

REPORT INFORMATION
  Report Type: Spontaneous
  Country: US (occurrence: US)
  Receive Date: 20180221
  Receipt Date: 20191119
  Transmission Date: 20200122
  Serious: Yes (Other)
  Sender: FDA-Public Use
  Company Number: US-PFIZER INC-2018072912

PATIENT
  Age: 59 Year
  Sex: Female

DRUGS (5)
  1. XELJANZ XR [Suspect]
     Active Substance: TOFACITINIB CITRATE
     Dosage: 11 MG, DAILY
     Route: 048
     Dates: start: 20190523
  2. MELOXICAM. [Concomitant]
     Active Substance: MELOXICAM
     Dosage: UNK, WEEKLY [10 TABS WEEKLY]
  3. METHOTREXATE. [Concomitant]
     Active Substance: METHOTREXATE
     Dosage: 10 DF, WEEKLY [10 TABS WEEKLY]
  4. ALLEGRA [Concomitant]
     Active Substance: FEXOFENADINE HYDROCHLORIDE
     Indication: HYPERSENSITIVITY
     Dosage: UNK
  5. XELJANZ XR [Suspect]
     Active Substance: TOFACITINIB CITRATE
     Indication: RHEUMATOID ARTHRITIS
     Dosage: 11 MG, DAILY
     Route: 048
     Dates: end: 2018

REACTIONS (3)
  - Weight decreased [Unknown]
  - Osteoarthritis [Not Recovered/Not Resolved]
  - Arrhythmia [Not Recovered/Not Resolved]
